FAERS Safety Report 13762744 (Version 2)
Quarter: 2017Q3

REPORT INFORMATION
  Report Type: Report from Study
  Country: US (occurrence: US)
  Receive Date: 20170718
  Receipt Date: 20170919
  Transmission Date: 20171127
  Serious: Yes (Hospitalization, Other)
  Sender: FDA-Public Use
  Company Number: US-BAYER-2017-126170

PATIENT
  Age: 61 Year
  Sex: Male

DRUGS (3)
  1. STIVARGA [Suspect]
     Active Substance: REGORAFENIB
     Indication: RECTAL CANCER
     Dosage: DAILY DOSE 120 MG
     Route: 048
     Dates: start: 20170601, end: 201706
  2. STIVARGA [Suspect]
     Active Substance: REGORAFENIB
     Indication: RECTAL CANCER
     Dosage: DAILY DOSE 120 MG (FOR 21 DAYS THEN OFF FOR 7 DAYS)
     Route: 048
     Dates: start: 2017
  3. STIVARGA [Suspect]
     Active Substance: REGORAFENIB
     Indication: METASTASES TO LUNG
     Dosage: DAILY DOSE 80 MG
     Route: 048
     Dates: start: 201706, end: 2017

REACTIONS (4)
  - Blood test abnormal [None]
  - Rectal cancer [None]
  - Blood glucose increased [None]
  - Drug intolerance [None]

NARRATIVE: CASE EVENT DATE: 2017
